FAERS Safety Report 14071589 (Version 2)
Quarter: 2018Q1

REPORT INFORMATION
  Report Type: Spontaneous
  Country: US (occurrence: US)
  Receive Date: 20171010
  Receipt Date: 20180105
  Transmission Date: 20180508
  Serious: No
  Sender: FDA-Public Use
  Company Number: US-SA-2017SA146953

PATIENT
  Age: 38 Year
  Sex: Male

DRUGS (1)
  1. DUPIXENT [Suspect]
     Active Substance: DUPILUMAB
     Indication: DERMATITIS ATOPIC
     Route: 058
     Dates: start: 201706

REACTIONS (12)
  - Pruritus [Unknown]
  - Skin exfoliation [Unknown]
  - Condition aggravated [Unknown]
  - Eyelid skin dryness [Unknown]
  - Dry skin [Unknown]
  - Eyelid margin crusting [Unknown]
  - Injection site reaction [Unknown]
  - Eyelid oedema [Unknown]
  - Disease recurrence [Unknown]
  - Eyelid irritation [Unknown]
  - Sleep disorder [Unknown]
  - Skin fissures [Unknown]

NARRATIVE: CASE EVENT DATE: 2017
